FAERS Safety Report 24114219 (Version 3)
Quarter: 2025Q2

REPORT INFORMATION
  Report Type: Report from Study
  Country: BR (occurrence: BR)
  Receive Date: 20240720
  Receipt Date: 20250610
  Transmission Date: 20250716
  Serious: No
  Sender: TAKEDA
  Company Number: BR-TAKEDA-2024TUS015492

PATIENT
  Age: 68 Year
  Sex: Female

DRUGS (3)
  1. VEDOLIZUMAB [Suspect]
     Active Substance: VEDOLIZUMAB
     Indication: Colitis ulcerative
  2. MESALAMINE [Suspect]
     Active Substance: MESALAMINE
     Indication: Colitis ulcerative
     Dosage: UNK, BID
     Dates: start: 2011
  3. MESALAMINE [Suspect]
     Active Substance: MESALAMINE
     Dosage: UNK, BID
     Dates: start: 2022

REACTIONS (4)
  - Mucous stools [Recovering/Resolving]
  - Diarrhoea [Recovering/Resolving]
  - Inappropriate schedule of product administration [Unknown]
  - Product availability issue [Unknown]

NARRATIVE: CASE EVENT DATE: 20231201
